FAERS Safety Report 9725280 (Version 1)
Quarter: 2013Q4

REPORT INFORMATION
  Report Type: Spontaneous
  Country: US (occurrence: None)
  Receive Date: 20131202
  Receipt Date: 20131202
  Transmission Date: 20140711
  Serious: Yes (Disabling)
  Sender: FDA-Public Use
  Company Number: None

PATIENT
  Age: 49 Year
  Sex: Female
  Weight: 56.7 kg

DRUGS (1)
  1. LEVAQUIN [Suspect]
     Indication: URINARY TRACT INFECTION
     Dosage: INTO A VEIN
     Dates: start: 20130713, end: 20130715

REACTIONS (5)
  - Blood pressure decreased [None]
  - Asthenia [None]
  - Dizziness [None]
  - Pain in extremity [None]
  - Burning sensation [None]
